FAERS Safety Report 5194451-8 (Version None)
Quarter: 2006Q4

REPORT INFORMATION
  Report Type: 
  Country: None (occurrence: None)
  Receive Date: 20061228
  Receipt Date: 20060614
  Transmission Date: 20070319
  Serious: Yes (Death, Hospitalization, Other)
  Sender: FDA-Public Use
  Company Number: JP-MERCK-0606USA03064

PATIENT
  Age: 66 Year
  Sex: Female

DRUGS (4)
  1. DECADRON [Suspect]
     Indication: BRAIN OEDEMA
     Route: 048
  2. DECADRON [Suspect]
     Route: 048
  3. GEMCITABINE HYDROCHLORIDE [Concomitant]
     Indication: PANCREATIC CARCINOMA METASTATIC
     Route: 065
  4. GLYCEOL [Concomitant]
     Indication: BRAIN OEDEMA
     Route: 042

REACTIONS (3)
  - METASTASES TO LIVER [None]
  - METASTASES TO LYMPH NODES [None]
  - PNEUMOCYSTIS JIROVECI PNEUMONIA [None]
